FAERS Safety Report 6268017-2 (Version None)
Quarter: 2009Q3

REPORT INFORMATION
  Report Type: 
  Country: None (occurrence: None)
  Receive Date: 20090713
  Receipt Date: 20090623
  Transmission Date: 20100115
  Serious: Yes (Hospitalization)
  Sender: FDA-Public Use
  Company Number: JPI-P-007595

PATIENT
  Age: 58 Year
  Sex: Male
  Weight: 104.3273 kg

DRUGS (10)
  1. XYREM [Suspect]
     Indication: NARCOLEPSY
     Dosage: SEE IMAGE
     Route: 048
     Dates: start: 20081112
  2. ASPIRIN [Concomitant]
  3. ATENOLOL [Concomitant]
  4. ETODOLAC [Concomitant]
  5. OTOMAX [Concomitant]
  6. RISPERDAL [Concomitant]
  7. TROSPIUM CHLORIDE [Concomitant]
  8. SIMVASTATIN [Concomitant]
  9. FENOFIBRATE [Concomitant]
  10. NORTRIPTYLINE HCL [Concomitant]

REACTIONS (11)
  - AMNESIA [None]
  - DRUG INEFFECTIVE [None]
  - FATIGUE [None]
  - HEAD INJURY [None]
  - HYPERHIDROSIS [None]
  - INCONTINENCE [None]
  - INCORRECT DOSE ADMINISTERED [None]
  - MUSCULOSKELETAL STIFFNESS [None]
  - NAUSEA [None]
  - SOMNOLENCE [None]
  - TREMOR [None]
